FAERS Safety Report 9192023 (Version 1)
Quarter: 2013Q1

REPORT INFORMATION
  Report Type: Spontaneous
  Country: US (occurrence: None)
  Receive Date: 20130326
  Receipt Date: 20130326
  Transmission Date: 20140127
  Serious: Yes (Life-Threatening)
  Sender: FDA-Public Use
  Company Number: None

PATIENT
  Age: 56 Year
  Sex: Female

DRUGS (1)
  1. XANAX 1MG GREENSTONE LTD [Suspect]
     Indication: ANXIETY
     Dosage: 1 TABLET 3 TIMES DAILY ORALLY
     Route: 048
     Dates: start: 20121012, end: 20130226

REACTIONS (1)
  - Overdose [None]
